FAERS Safety Report 15749793 (Version 2)
Quarter: 2019Q1

REPORT INFORMATION
  Report Type: Spontaneous
  Country: PT (occurrence: PT)
  Receive Date: 20181221
  Receipt Date: 20190116
  Transmission Date: 20190417
  Serious: Yes (Hospitalization, Other)
  Sender: FDA-Public Use
  Company Number: PT-TEVA-2018-PT-990761

PATIENT
  Age: 30 Year
  Sex: Male

DRUGS (1)
  1. AMLODIPINE [Suspect]
     Active Substance: AMLODIPINE BESYLATE
     Dosage: VOLUNTARY INTOXICATION WITH 70MG
     Route: 065

REACTIONS (7)
  - Coma [Unknown]
  - Conduction disorder [Unknown]
  - Intentional overdose [Unknown]
  - Metabolic acidosis [Unknown]
  - Leukocytosis [Unknown]
  - Myocardial depression [Unknown]
  - Hypoinsulinaemia [Unknown]
